FAERS Safety Report 9858617 (Version 4)
Quarter: 2014Q1

REPORT INFORMATION
  Report Type: Spontaneous
  Country: JP (occurrence: JP)
  Receive Date: 20140131
  Receipt Date: 20140220
  Transmission Date: 20141002
  Serious: Yes (Life-Threatening, Hospitalization)
  Sender: FDA-Public Use
  Company Number: JP-009507513-1401JPN013428

PATIENT
  Age: 78 Year
  Sex: Male
  Weight: 58 kg

DRUGS (11)
  1. GASTER D [Suspect]
     Indication: PROPHYLAXIS AGAINST GASTROINTESTINAL ULCER
     Dosage: 20 MG, BID
     Route: 048
     Dates: start: 20131226, end: 20140110
  2. GASTER D [Suspect]
     Indication: GASTRIC ULCER
  3. NEXIUM [Concomitant]
     Indication: PROPHYLAXIS AGAINST GASTROINTESTINAL ULCER
     Dosage: 20 MG, QD
     Route: 048
     Dates: start: 20131029, end: 20131226
  4. PROMAC (POLAPREZINC) [Concomitant]
     Indication: PROPHYLAXIS AGAINST GASTROINTESTINAL ULCER
     Dosage: 75 MG, BID
     Route: 048
     Dates: start: 20131029
  5. PROMAC (POLAPREZINC) [Concomitant]
     Indication: GASTRIC ULCER
  6. TAMSULOSIN HYDROCHLORIDE [Concomitant]
     Indication: BENIGN PROSTATIC HYPERPLASIA
     Dosage: UNK
  7. SOLANAX [Concomitant]
     Indication: ANXIETY
     Dosage: UNK
  8. ADALAT CR [Concomitant]
     Indication: HYPERTENSION
     Dosage: FORMULATION: SLOW RELEASE TABLET
  9. MICARDIS [Concomitant]
     Indication: HYPERTENSION
     Dosage: UNK
  10. MALFA [Concomitant]
     Indication: GASTRIC ULCER HAEMORRHAGE
     Dosage: FORMULATION: ORAL SOLUTION
     Route: 048
     Dates: start: 20131022
  11. SANMEL [Concomitant]
     Indication: GASTRIC ULCER HAEMORRHAGE
     Dosage: FORMULATION: ORAL SOLUTION
     Route: 048
     Dates: start: 20131022

REACTIONS (3)
  - Gastric ulcer [Recovered/Resolved]
  - Shock haemorrhagic [Recovered/Resolved]
  - Drug ineffective for unapproved indication [Unknown]
